FAERS Safety Report 20784753 (Version 1)
Quarter: 2022Q2

REPORT INFORMATION
  Report Type: Report from Study
  Country: ES (occurrence: ES)
  Receive Date: 20220504
  Receipt Date: 20220504
  Transmission Date: 20220721
  Serious: Yes (Hospitalization)
  Sender: FDA-Public Use
  Company Number: ES-ISA THERAPEUTICS B.V-ES-ISA-000184

PATIENT
  Age: 65 Year
  Sex: Female

DRUGS (4)
  1. CEMIPLIMAB [Suspect]
     Active Substance: CEMIPLIMAB
     Indication: Product used for unknown indication
     Dosage: 350 MILLIGRAM, EVERY 3 WEEK
     Route: 042
     Dates: start: 20220118, end: 20220118
  2. CEMIPLIMAB [Suspect]
     Active Substance: CEMIPLIMAB
     Dosage: 350 MILLIGRAM, EVERY 3 WEEK
     Route: 042
     Dates: start: 20220316, end: 20220316
  3. INVESTIGATIONAL PRODUCT [Suspect]
     Active Substance: INVESTIGATIONAL PRODUCT
     Indication: Product used for unknown indication
     Dosage: 0.5 MILLILITER
     Route: 058
     Dates: start: 20220118, end: 20220316
  4. INVESTIGATIONAL PRODUCT [Suspect]
     Active Substance: INVESTIGATIONAL PRODUCT
     Indication: Product used for unknown indication
     Dosage: 0.5 MILLILITER
     Route: 058
     Dates: start: 20220118, end: 20220316

REACTIONS (2)
  - Ophthalmoplegia [Not Recovered/Not Resolved]
  - Myocarditis [Not Recovered/Not Resolved]

NARRATIVE: CASE EVENT DATE: 20220318
